FAERS Safety Report 8579301-1 (Version None)
Quarter: 2012Q3

REPORT INFORMATION
  Report Type: 
  Country: None (occurrence: None)
  Receive Date: 20120731
  Receipt Date: 20120731
  Transmission Date: 20120928
  Serious: Yes (Hospitalization, Disabling)
  Sender: FDA-Public Use
  Company Number: None

PATIENT
  Age: 84 Year
  Sex: Female
  Weight: 52.6173 kg

DRUGS (1)
  1. DONEPEZIL HCL [Suspect]

REACTIONS (2)
  - WEIGHT DECREASED [None]
  - INSOMNIA [None]
